FAERS Safety Report 9312505 (Version 1)
Quarter: 2013Q2

REPORT INFORMATION
  Report Type: Spontaneous
  Country: US (occurrence: US)
  Receive Date: 20130528
  Receipt Date: 20130528
  Transmission Date: 20140414
  Serious: Yes (Other)
  Sender: FDA-Public Use
  Company Number: PHHY2013US052135

PATIENT
  Age: 17 Year
  Sex: Female
  Weight: 50 kg

DRUGS (1)
  1. PARACETAMOL [Suspect]

REACTIONS (6)
  - Brain death [Unknown]
  - Coagulopathy [Unknown]
  - Acute hepatic failure [Unknown]
  - Encephalopathy [Unknown]
  - Renal failure [Unknown]
  - Overdose [Unknown]
